FAERS Safety Report 24647071 (Version 1)
Quarter: 2024Q4

REPORT INFORMATION
  Report Type: Spontaneous
  Country: EG (occurrence: EG)
  Receive Date: 20241121
  Receipt Date: 20241121
  Transmission Date: 20250115
  Serious: Yes (Other)
  Sender: HIKMA
  Company Number: EG-HIKMA PHARMACEUTICALS-EG-H14001-24-10681

PATIENT
  Age: 22 Year
  Sex: Male
  Weight: 69 kg

DRUGS (3)
  1. ADRIAMYCIN [Suspect]
     Active Substance: DOXORUBICIN HYDROCHLORIDE
     Indication: Rhabdomyosarcoma
     Dosage: 102 MILLIGRAM, 3W
     Route: 042
     Dates: start: 20240420
  2. IFOSFAMIDE [Suspect]
     Active Substance: IFOSFAMIDE
     Indication: Rhabdomyosarcoma
     Dosage: 3.06 GRAM, 3W
     Route: 042
     Dates: start: 20240709
  3. MESNA [Suspect]
     Active Substance: MESNA
     Indication: Rhabdomyosarcoma
     Dosage: 1.8 GRAM, 3W
     Route: 042
     Dates: start: 20240709

REACTIONS (4)
  - Leukocytosis [Recovered/Resolved]
  - Neuropathy peripheral [Recovering/Resolving]
  - Chest pain [Recovered/Resolved]
  - Abdominal pain [Recovered/Resolved]

NARRATIVE: CASE EVENT DATE: 20241026
